FAERS Safety Report 5103990-7 (Version None)
Quarter: 2006Q3

REPORT INFORMATION
  Report Type: 
  Country: None (occurrence: None)
  Receive Date: 20060908
  Receipt Date: 20060828
  Transmission Date: 20061208
  Serious: Yes (Hospitalization)
  Sender: FDA-Public Use
  Company Number: T200600950

PATIENT
  Age: 67 Year
  Sex: Male

DRUGS (15)
  1. METHADOSE [Suspect]
     Indication: PAIN
     Dosage: ORAL
     Route: 048
     Dates: start: 20060517, end: 20060524
  2. SU 11248 (SUNITINIB MALATE) 50 MG [Suspect]
     Indication: METASTATIC RENAL CELL CARCINOMA
     Dosage: SEE IMAGE
     Route: 048
     Dates: start: 20060502, end: 20060524
  3. SU 11248 (SUNITINIB MALATE) 50 MG [Suspect]
     Indication: METASTATIC RENAL CELL CARCINOMA
     Dosage: SEE IMAGE
     Route: 048
     Dates: start: 20060613
  4. DICLOFENAC (DICLOFENAC) [Concomitant]
  5. METFORMIN HCL [Concomitant]
  6. ENALAPRIL MALEATE [Concomitant]
  7. SELOKEEN /00376902/ (METOPROLOL TARTRATE) [Concomitant]
  8. NORVASC /00972401/ (AMLODIPINE) [Concomitant]
  9. PANTOZOL (PANTOPRAZOLE SODIUM) [Concomitant]
  10. ASCAL  /00002702/ (ACETYLSALICYLIC CALCIUM) [Concomitant]
  11. LACTULOSE [Concomitant]
  12. DURAGESIC-100 [Concomitant]
  13. PRIMPERAN /00041901/ (METOCLOPRAMIDE) [Concomitant]
  14. PRAVASTATIN [Concomitant]
  15. OXYCODONE HCL [Concomitant]

REACTIONS (6)
  - BLOOD GLUCOSE ABNORMAL [None]
  - DEHYDRATION [None]
  - DIARRHOEA [None]
  - MALAISE [None]
  - NAUSEA [None]
  - ORAL INTAKE REDUCED [None]
